FAERS Safety Report 5521427-0 (Version None)
Quarter: 2007Q4

REPORT INFORMATION
  Report Type: 
  Country: None (occurrence: None)
  Receive Date: 20071119
  Receipt Date: 20071107
  Transmission Date: 20080405
  Serious: Yes (Other)
  Sender: FDA-Public Use
  Company Number: US-PFIZER INC-2007094024

PATIENT

DRUGS (1)
  1. LYRICA [Suspect]

REACTIONS (1)
  - HYPONATRAEMIA [None]
